FAERS Safety Report 17035445 (Version 2)
Quarter: 2019Q4

REPORT INFORMATION
  Report Type: Spontaneous
  Country: US (occurrence: US)
  Receive Date: 20191115
  Receipt Date: 20191116
  Transmission Date: 20200122
  Serious: Yes (Other)
  Sender: FDA-Public Use
  Company Number: US-JNJFOC-20191111024

PATIENT

DRUGS (9)
  1. AVELUMAB [Suspect]
     Active Substance: AVELUMAB
     Dosage: 1, 3, 10, OR 20 MG/KG EVERY 2 WEEKS
     Route: 065
  2. DEXCHLORPHENIRAMINE [Suspect]
     Active Substance: DEXCHLORPHENIRAMINE
     Indication: PRODUCT USED FOR UNKNOWN INDICATION
     Route: 065
  3. ESCITALOPRAM [Suspect]
     Active Substance: ESCITALOPRAM OXALATE
     Indication: PRODUCT USED FOR UNKNOWN INDICATION
     Route: 065
  4. DIPHENHYDRAMINE HYDROCHLORIDE. [Suspect]
     Active Substance: DIPHENHYDRAMINE HYDROCHLORIDE
     Indication: PREMEDICATION
     Dosage: (2550 MG, MODIFED PER LOCAL STANDARDS)
     Route: 065
  5. AVELUMAB [Suspect]
     Active Substance: AVELUMAB
     Dosage: 1, 3, 10, OR 20 MG/KG EVERY 2 WEEKS
     Route: 065
  6. LORATADINE. [Suspect]
     Active Substance: LORATADINE
     Indication: PRODUCT USED FOR UNKNOWN INDICATION
     Route: 065
  7. AVELUMAB [Suspect]
     Active Substance: AVELUMAB
     Indication: NEOPLASM
     Dosage: 1, 3, 10, OR 20 MG/KG EVERY 2 WEEKS
     Route: 065
  8. AVELUMAB [Suspect]
     Active Substance: AVELUMAB
     Dosage: 1, 3, 10, OR 20 MG/KG EVERY 2 WEEKS
     Route: 065
  9. OXYCODONE [Suspect]
     Active Substance: OXYCODONE
     Indication: PRODUCT USED FOR UNKNOWN INDICATION
     Route: 065

REACTIONS (3)
  - Electrocardiogram QT prolonged [Unknown]
  - Product use in unapproved indication [Unknown]
  - Off label use [Unknown]
